FAERS Safety Report 5580143-X (Version None)
Quarter: 2007Q4

REPORT INFORMATION
  Report Type: 
  Country: None (occurrence: None)
  Receive Date: 20071227
  Receipt Date: 20071227
  Transmission Date: 20080405
  Serious: Yes (Other)
  Sender: FDA-Public Use
  Company Number: None

PATIENT
  Sex: Female
  Weight: 75.7507 kg

DRUGS (1)
  1. TRASYLOL [Suspect]
     Indication: HAEMORRHAGE

REACTIONS (2)
  - POST PROCEDURAL COMPLICATION [None]
  - RENAL FAILURE ACUTE [None]
